FAERS Safety Report 24801917 (Version 1)
Quarter: 2025Q1

REPORT INFORMATION
  Report Type: Spontaneous
  Country: GB (occurrence: GB)
  Receive Date: 20250102
  Receipt Date: 20250102
  Transmission Date: 20250409
  Serious: Yes (Other)
  Sender: TEVA
  Company Number: GB-MHRA-TPP44942878C9267120YC1735057537463

PATIENT
  Age: 69 Year
  Sex: Male
  Weight: 93 kg

DRUGS (13)
  1. PREDNISOLONE [Suspect]
     Active Substance: PREDNISOLONE
     Indication: Ill-defined disorder
     Route: 065
     Dates: start: 20241125
  2. DOXYCYCLINE [Concomitant]
     Active Substance: DOXYCYCLINE
     Indication: Ill-defined disorder
     Dates: start: 20241029, end: 20241103
  3. FLUTICASONE PROPIONATE [Concomitant]
     Active Substance: FLUTICASONE PROPIONATE
     Indication: Ill-defined disorder
     Dosage: PUFFS, TPP YC - PLEASE RECLASSIFY
     Dates: start: 20241125, end: 20241223
  4. ALLOPURINOL [Concomitant]
     Active Substance: ALLOPURINOL
     Indication: Ill-defined disorder
     Dosage: TPP YC - PLEASE RECLASSIFY
     Dates: start: 20240620
  5. EASYHALER [Concomitant]
     Indication: Ill-defined disorder
     Route: 055
     Dates: start: 20240817
  6. AMLODIPINE [Concomitant]
     Active Substance: AMLODIPINE BESYLATE
     Indication: Ill-defined disorder
     Dosage: TPP YC - PLEASE RECLASSIFY
     Dates: start: 20240620
  7. CETIRIZINE [Concomitant]
     Active Substance: CETIRIZINE HYDROCHLORIDE
     Indication: Ill-defined disorder
     Dosage: TPP YC - PLEASE RECLASSIFY
     Dates: start: 20241125, end: 20241223
  8. ATORVASTATIN [Concomitant]
     Active Substance: ATORVASTATIN
     Indication: Ill-defined disorder
     Dosage: FOR PRIMARY PREVENTION OF CARDIO..., TPP YC - PLEASE RECLASSIFY
     Dates: start: 20240620
  9. LANSOPRAZOLE [Concomitant]
     Active Substance: LANSOPRAZOLE
     Indication: Ill-defined disorder
     Dosage: BARRETT^S, TPP YC - PLEASE RECLASSIFY
     Dates: start: 20240620
  10. SILDENAFIL [Concomitant]
     Active Substance: SILDENAFIL
     Indication: Ill-defined disorder
     Dates: start: 20240620
  11. LOSARTAN [Concomitant]
     Active Substance: LOSARTAN
     Indication: Ill-defined disorder
     Dosage: TPP YC - PLEASE RECLASSIFY
     Dates: start: 20240620
  12. MINERAL OIL\PARAFFIN [Concomitant]
     Active Substance: MINERAL OIL\PARAFFIN
     Indication: Ill-defined disorder
     Dates: start: 20240620
  13. BECLOMETHASONE\FORMOTEROL [Concomitant]
     Active Substance: BECLOMETHASONE\FORMOTEROL
     Indication: Ill-defined disorder
     Dosage: 1-2 PUFFS, TPP YC - PLEASE RECLASSIFY
     Dates: start: 20240620

REACTIONS (2)
  - Chest discomfort [Unknown]
  - Dyspnoea [Unknown]

NARRATIVE: CASE EVENT DATE: 20241201
